FAERS Safety Report 7655296-X (Version None)
Quarter: 2011Q3

REPORT INFORMATION
  Report Type: 
  Country: None (occurrence: None)
  Receive Date: 20110804
  Receipt Date: 20110728
  Transmission Date: 20111222
  Serious: Yes (Death, Life-Threatening, Hospitalization)
  Sender: FDA-Public Use
  Company Number: KR-BAYER-2011-042636

PATIENT
  Age: 69 Year
  Sex: Female
  Weight: 55 kg

DRUGS (54)
  1. MEK INHIBITOR (DIHYDROXYPROP-DIFLU-METHOXYPHEN-CYCLOPROPA-SULFAMI) [Suspect]
     Indication: HEPATIC NEOPLASM MALIGNANT
     Dosage: 50 MG, QD(PM)
     Route: 048
     Dates: start: 20110612, end: 20110612
  2. MEK INHIBITOR (DIHYDROXYPROP-DIFLU-METHOXYPHEN-CYCLOPROPA-SULFAMI) [Suspect]
     Dosage: 50 MG, BID (50 AM/50 PM)
     Route: 048
     Dates: start: 20110613, end: 20110614
  3. DEXTROSE [Concomitant]
     Indication: PROPHYLAXIS AGAINST DEHYDRATION
     Dosage: 500 ML, BID
     Route: 042
     Dates: start: 20110518, end: 20110518
  4. MEPERIDINE HCL [Concomitant]
     Indication: ABDOMINAL PAIN
     Dosage: 25 MG, QD
     Route: 042
     Dates: start: 20110518, end: 20110518
  5. ZENOL [CAMPHOR,DIPHENHYDRAMINE HYDROCHLORIDE,GLYCOL SALICYLATE,MEN [Concomitant]
     Indication: BACK PAIN
     Dosage: 2 EA BID
     Route: 061
     Dates: start: 20110526, end: 20110527
  6. ALDACTONE [Concomitant]
     Indication: ABDOMINAL DISTENSION
     Dosage: 50 MG, QD
     Route: 048
     Dates: start: 20110529, end: 20110615
  7. DEXTROSE [Concomitant]
     Dosage: 1000 ML, QD
     Route: 042
     Dates: start: 20110519, end: 20110519
  8. PROPRANOLOL [Concomitant]
     Indication: PORTAL HYPERTENSION
     Dosage: 20 MG, BID
     Route: 048
     Dates: start: 20110601, end: 20110605
  9. ACETYLCYSTEINE [Concomitant]
     Indication: BLOOD CREATININE INCREASED
     Dosage: 600 MG, QD
     Route: 048
     Dates: start: 20110530, end: 20110530
  10. LACTULOSE [Concomitant]
     Indication: CONSTIPATION PROPHYLAXIS
     Dosage: 1 PK BID
     Dates: start: 20110523, end: 20110523
  11. MAGALDRATE W/SIMETICONE [Concomitant]
     Indication: ENDOSCOPIC RETROGRADE CHOLANGIOPANCREATOGRAPHY
     Dosage: 10 ML, QD
     Route: 048
     Dates: start: 20110518, end: 20110518
  12. FLUNIL [Concomitant]
     Indication: BILIARY DRAINAGE
     Dosage: 0.5 MG, QD
     Route: 042
     Dates: start: 20110518, end: 20110518
  13. ALGIRON [Concomitant]
     Dosage: 5 MG, QD
     Route: 042
     Dates: start: 20110530, end: 20110531
  14. ULTRACET [Concomitant]
     Indication: ABDOMINAL PAIN
     Dosage: 1 TAB TID
     Dates: start: 20110602, end: 20110605
  15. SORAFENIB (RAF KINASE INHIBITOR) [Suspect]
     Dosage: 600 MG, QD(200 AM/ 400 PM)
     Dates: start: 20110613, end: 20110614
  16. DEXTROSE [Concomitant]
     Dosage: 500 ML, QD
     Route: 042
     Dates: start: 20110519, end: 20110523
  17. MEGACE [Concomitant]
     Indication: DECREASED APPETITE
     Dosage: 10 ML, BID
     Route: 048
     Dates: start: 20110519, end: 20110520
  18. FUTHAN [Concomitant]
     Indication: BLOOD AMYLASE INCREASED
     Dosage: 50 MG, QD
     Route: 042
     Dates: start: 20110518, end: 20110523
  19. MAGNESIUM OXIDE [Concomitant]
     Indication: CONSTIPATION
     Dosage: 500 MG, BID
     Route: 048
     Dates: start: 20110601, end: 20110607
  20. XYLOCAINE [Concomitant]
     Indication: LOCAL ANAESTHESIA
     Dosage: 3 CC QD
     Dates: start: 20110518, end: 20110518
  21. URSODIOL [Concomitant]
     Indication: HEPATITIS C
     Dosage: 200 MG, BID
     Route: 048
     Dates: start: 20110325, end: 20110516
  22. THIAMINE [Concomitant]
     Dosage: 10 MG, TID
     Route: 048
     Dates: start: 20110519, end: 20110606
  23. CALCIUM POLYCARBONATE [Concomitant]
     Indication: CONSTIPATION PROPHYLAXIS
     Dosage: 625 MG, TID
  24. FAMOTIDINE [Concomitant]
     Indication: PROPHYLAXIS AGAINST GASTROINTESTINAL ULCER
     Dosage: 20 MG, BID
     Route: 042
     Dates: start: 20110519, end: 20110601
  25. FUROSEMIDE [Concomitant]
     Indication: ABDOMINAL DISTENSION
     Dosage: 20 MG, QD
     Route: 048
     Dates: start: 20110529, end: 20110615
  26. ALGIRON [Concomitant]
     Indication: ABDOMINAL PAIN
     Dosage: 20 MG, QD
     Route: 042
     Dates: start: 20110518, end: 20110518
  27. ALGIRON [Concomitant]
     Dosage: 5 MG, BID
     Route: 042
     Dates: start: 20110524, end: 20110524
  28. DURAGESIC-100 [Concomitant]
     Indication: BACK PAIN
     Dosage: 12 ?G, QOD
     Route: 062
     Dates: start: 20110601, end: 20110604
  29. MORPHINE [Concomitant]
     Indication: FLANK PAIN
     Dosage: 3 MG, QD
     Route: 058
     Dates: start: 20110519, end: 20110519
  30. FUTHAN [Concomitant]
     Indication: LIPASE INCREASED
  31. LEVOSULPIRIDE [Concomitant]
     Indication: DYSPEPSIA
     Dosage: 25 MG, QD
     Dates: start: 20110521, end: 20110521
  32. SODIUM CHLORIDE [Concomitant]
     Indication: PROPHYLAXIS AGAINST DEHYDRATION
     Dosage: 1000 ML, QD
     Route: 042
     Dates: start: 20110601, end: 20110601
  33. NORVASC [Concomitant]
     Indication: HYPERTENSION
     Dosage: 5 MG, QD
     Route: 048
     Dates: start: 20110406, end: 20110619
  34. URSODIOL [Concomitant]
     Dosage: 200 MG, TID
     Route: 048
     Dates: start: 20110519, end: 20110606
  35. THIAMINE [Concomitant]
     Indication: HEPATITIS C
     Dosage: 20 MG, BID
     Route: 048
     Dates: start: 20110325, end: 20110518
  36. MIDAZOLAM HCL [Concomitant]
     Indication: BILIARY DRAINAGE
     Dosage: 5 MG, QD
     Route: 042
     Dates: start: 20110518, end: 20110518
  37. ALBUMIN (HUMAN) [Concomitant]
     Indication: HYPOALBUMINAEMIA
     Dosage: 100 ML, QD
     Route: 042
     Dates: start: 20110529, end: 20110601
  38. CELEBREX [Concomitant]
     Indication: BACK PAIN
     Dosage: 200 MG, BID
     Route: 048
     Dates: start: 20110601, end: 20110615
  39. DUPHALAC [Concomitant]
     Indication: CONSTIPATION
     Dosage: 15 ML, BID
     Route: 048
     Dates: start: 20110603, end: 20110605
  40. LIDOCAINE HYDROCHLORIDE [Concomitant]
     Indication: LOCAL ANAESTHESIA
     Dosage: 2 ML, QD
     Route: 058
     Dates: start: 20110601, end: 20110601
  41. SORAFENIB (RAF KINASE INHIBITOR) [Suspect]
     Dosage: 200 MG, QD(AM)
     Route: 048
     Dates: start: 20110615, end: 20110615
  42. DEXTROSE [Concomitant]
     Dosage: 500 ML, QD
     Route: 042
     Dates: start: 20110530, end: 20110601
  43. HEPATAMINE [Concomitant]
     Indication: ASTHENIA
  44. MEGACE [Concomitant]
     Dosage: 10 ML, QD
     Dates: start: 20110522, end: 20110606
  45. ZENOL [CAMPHOR,DIPHENHYDRAMINE HYDROCHLORIDE,GLYCOL SALICYLATE,MEN [Concomitant]
     Dosage: 2 EA BID
     Route: 061
     Dates: start: 20110531, end: 20110531
  46. ACETAMINOPHEN [Concomitant]
     Indication: HEADACHE
     Dosage: 650 MG, QD
     Route: 048
     Dates: start: 20110520, end: 20110520
  47. ANTIBIOTICS [Concomitant]
     Indication: DIARRHOEA
     Dosage: 300 MG, TID
     Route: 048
     Dates: start: 20110525, end: 20110605
  48. ALGIRON [Concomitant]
     Dosage: 5 MG, QD
     Route: 042
     Dates: start: 20110523, end: 20110523
  49. METOCLOPRAMIDE [Concomitant]
     Indication: NAUSEA
     Dosage: 2.5 MG, TID
     Route: 048
     Dates: start: 20110601, end: 20110601
  50. MEK INHIBITOR (DIHYDROXYPROP-DIFLU-METHOXYPHEN-CYCLOPROPA-SULFAMI) [Suspect]
     Dosage: 50 MG, QD(AM)
     Route: 048
     Dates: start: 20110615, end: 20110615
  51. SORAFENIB (RAF KINASE INHIBITOR) [Suspect]
     Indication: HEPATIC NEOPLASM MALIGNANT
     Dosage: 400 MG, QD(PM)
     Route: 048
     Dates: start: 20110612, end: 20110612
  52. HEPATAMINE [Concomitant]
     Indication: MEDICAL DIET
     Dosage: 500 MG, QD
     Route: 042
     Dates: start: 20110518, end: 20110525
  53. MORPHINE [Concomitant]
     Indication: ABDOMINAL PAIN
     Dosage: 3 MG, QD
     Route: 058
     Dates: start: 20110518, end: 20110518
  54. HUMULIN R [Concomitant]
     Indication: DIABETES MELLITUS
     Dosage: 2 IU, QD
     Route: 042
     Dates: start: 20110603, end: 20110603

REACTIONS (2)
  - BLOOD BILIRUBIN INCREASED [None]
  - TUMOUR LYSIS SYNDROME [None]
